FAERS Safety Report 10669790 (Version 2)
Quarter: 2014Q4

REPORT INFORMATION
  Report Type: Spontaneous
  Country: KZ (occurrence: KZ)
  Receive Date: 20141222
  Receipt Date: 20141222
  Transmission Date: 20150529
  Serious: Yes (Hospitalization, Other)
  Sender: FDA-Public Use
  Company Number: KZ-GLAXOSMITHKLINE-B0972197A

PATIENT
  Sex: Female
  Weight: 65 kg

DRUGS (4)
  1. PREDUCTAL [Concomitant]
     Active Substance: TRIMETAZIDINE DIHYDROCHLORIDE
     Indication: ASTHENIA
     Route: 065
     Dates: start: 20140108
  2. MILDRONATE [Concomitant]
     Indication: ASTHENIA
     Route: 065
     Dates: start: 20140108
  3. SORBIFER DURULES [Concomitant]
     Active Substance: FERROUS SULFATE\FERROUS SULFATE, DRIED
     Indication: ANAEMIA
     Route: 065
     Dates: start: 20140108
  4. VALTREX [Suspect]
     Active Substance: VALACYCLOVIR HYDROCHLORIDE
     Indication: HERPES VIRUS INFECTION
     Route: 065
     Dates: start: 20140108, end: 20140118

REACTIONS (3)
  - Abortion induced [Recovered/Resolved with Sequelae]
  - Abortion spontaneous [Unknown]
  - Exposure during pregnancy [Unknown]
